FAERS Safety Report 7881134-6 (Version None)
Quarter: 2011Q4

REPORT INFORMATION
  Report Type: 
  Country: None (occurrence: None)
  Receive Date: 20111101
  Receipt Date: 20110606
  Transmission Date: 20120403
  Serious: No
  Sender: FDA-Public Use
  Company Number: US-AMGEN-USASP2011029188

PATIENT
  Age: 8 Year
  Sex: Male

DRUGS (2)
  1. TREXALL [Concomitant]
     Dosage: 1 UNK, UNK
  2. ENBREL [Suspect]
     Indication: JUVENILE ARTHRITIS
     Dosage: 25 MG, 2 TIMES/WK
     Dates: start: 20110308

REACTIONS (4)
  - INJECTION SITE REACTION [None]
  - INJECTION SITE PAIN [None]
  - INJECTION SITE SWELLING [None]
  - INJECTION SITE ERYTHEMA [None]
